FAERS Safety Report 15349936 (Version 1)
Quarter: 2018Q3

REPORT INFORMATION
  Report Type: Spontaneous
  Country: BR (occurrence: BR)
  Receive Date: 20180904
  Receipt Date: 20180904
  Transmission Date: 20181010
  Serious: Yes (Death, Other)
  Sender: FDA-Public Use
  Company Number: BR-SEATTLE GENETICS-2018SGN02135

PATIENT
  Age: 47 Year
  Sex: Male

DRUGS (1)
  1. ADCETRIS [Suspect]
     Active Substance: BRENTUXIMAB VEDOTIN
     Indication: HODGKIN^S DISEASE
     Dosage: UNK
     Route: 042
     Dates: start: 20180823

REACTIONS (2)
  - Atrioventricular block complete [Unknown]
  - Death [Fatal]

NARRATIVE: CASE EVENT DATE: 201808
